FAERS Safety Report 8712052 (Version 2)
Quarter: 2012Q4

REPORT INFORMATION
  Report Type: 
  Country: NL (occurrence: NL)
  Receive Date: 20120807
  Receipt Date: 20120918
  Transmission Date: 20130627
  Serious: Yes (Other)
  Sender: FDA-Public Use
  Company Number: PHHY2012NL067528

PATIENT
  Age: 65 Year
  Sex: Female
  Weight: 75 kg

DRUGS (13)
  1. CEFTRIAXONE [Suspect]
     Indication: RESPIRATORY TRACT INFECTION
     Dosage: 1000 mg
     Route: 030
     Dates: start: 20120706, end: 20120713
  2. ACENOCOUMAROL [Interacting]
     Dosage: 1 mg
     Dates: start: 20120116
  3. PARACETAMOL [Concomitant]
     Dosage: 1000 mg if necessory
     Dates: start: 20120706
  4. LOSARTAN [Concomitant]
     Dosage: 50 mg
     Dates: start: 20120621
  5. FUROSEMIDE [Concomitant]
     Dosage: 40 mg
     Dates: start: 20120614
  6. FLUVOXAMINE [Concomitant]
     Dosage: 50 mg
     Dates: start: 20120605
  7. FENTANYL [Concomitant]
     Dates: start: 20120505
  8. KETOCONAZOLE [Concomitant]
     Dosage: 20 mg/g
     Dates: start: 20120504
  9. LORAZEPAM [Concomitant]
     Dosage: 1 mg
     Dates: start: 20120425
  10. PANTOZOL [Concomitant]
     Dosage: 20 mg
     Dates: start: 20120116
  11. LANOXIN [Concomitant]
     Dosage: .062 mg
     Dates: start: 20120116
  12. METOPROLOL [Concomitant]
     Dosage: 100 mg
     Dates: start: 20120116
  13. MIDAZOLAM [Concomitant]
     Dosage: 1 mg/ml
     Dates: start: 20120116

REACTIONS (2)
  - International normalised ratio increased [Unknown]
  - Drug interaction [Unknown]
